FAERS Safety Report 20988676 (Version 1)
Quarter: 2022Q2

REPORT INFORMATION
  Report Type: Spontaneous
  Country: CN (occurrence: CN)
  Receive Date: 20220621
  Receipt Date: 20220621
  Transmission Date: 20220721
  Serious: Yes (Hospitalization)
  Sender: FDA-Public Use
  Company Number: CN-GLAXOSMITHKLINE-CN2021GSK035415

PATIENT

DRUGS (1)
  1. ACITRETIN [Suspect]
     Active Substance: ACITRETIN
     Indication: Erythrodermic psoriasis
     Dosage: UNK
     Route: 048

REACTIONS (2)
  - Erythrodermic psoriasis [Unknown]
  - Drug resistance [Unknown]
